FAERS Safety Report 7563069-1 (Version None)
Quarter: 2011Q2

REPORT INFORMATION
  Report Type: 
  Country: None (occurrence: None)
  Receive Date: 20110621
  Receipt Date: 20110621
  Transmission Date: 20111010
  Serious: No
  Sender: FDA-Public Use
  Company Number: None

PATIENT
  Sex: Female
  Weight: 85.68 kg

DRUGS (4)
  1. CARBOPLATIN [Suspect]
     Dosage: 3042MG
  2. TAXOL [Suspect]
     Dosage: 1156MG
  3. CYCLOPHOSPHAMIDE [Suspect]
     Dosage: 4411MG
  4. DOXORUBICIN HYDROCHLORIDE [Suspect]
     Dosage: 440.5MG

REACTIONS (1)
  - OPTIC NEURITIS [None]
